FAERS Safety Report 14589053 (Version 1)
Quarter: 2018Q1

REPORT INFORMATION
  Report Type: Spontaneous
  Country: FR (occurrence: FR)
  Receive Date: 20180301
  Receipt Date: 20180301
  Transmission Date: 20180509
  Serious: Yes (Other)
  Sender: FDA-Public Use
  Company Number: FR-BRISTOL-MYERS SQUIBB COMPANY-BMS-2018-016604

PATIENT
  Sex: Female

DRUGS (1)
  1. HYDREA [Suspect]
     Active Substance: HYDROXYUREA
     Indication: PRODUCT USED FOR UNKNOWN INDICATION
     Dosage: 1 CAPSULE DAILY
     Route: 065
     Dates: start: 201411, end: 201502

REACTIONS (5)
  - Platelet count increased [Unknown]
  - Weight fluctuation [Unknown]
  - Product quality issue [Unknown]
  - Platelet count decreased [Unknown]
  - Treatment noncompliance [Unknown]
